FAERS Safety Report 21627662 (Version 1)
Quarter: 2022Q4

REPORT INFORMATION
  Report Type: Spontaneous
  Country: KR (occurrence: KR)
  Receive Date: 20221122
  Receipt Date: 20221122
  Transmission Date: 20230113
  Serious: Yes (Other)
  Sender: FDA-Public Use
  Company Number: KR-MYLANLABS-2022M1127627

PATIENT
  Age: 61 Year
  Sex: Male

DRUGS (3)
  1. LYRICA [Suspect]
     Active Substance: PREGABALIN
     Indication: Chest pain
     Dosage: 1 DOSAGE FORM, QD
     Route: 065
     Dates: start: 20180208
  2. AFLOQUALONE [Suspect]
     Active Substance: AFLOQUALONE
     Indication: Chest pain
     Dosage: 1 DOSAGE FORM, QD
     Route: 065
     Dates: start: 20180208
  3. ACETAMINOPHEN\TRAMADOL HYDROCHLORIDE [Suspect]
     Active Substance: ACETAMINOPHEN\TRAMADOL HYDROCHLORIDE
     Indication: Chest pain
     Dosage: 1 DOSAGE FORM, QD
     Route: 065
     Dates: start: 20180208

REACTIONS (2)
  - Erectile dysfunction [Unknown]
  - Off label use [Unknown]

NARRATIVE: CASE EVENT DATE: 20180208
